FAERS Safety Report 7605795-1 (Version None)
Quarter: 2011Q3

REPORT INFORMATION
  Report Type: 
  Country: None (occurrence: None)
  Receive Date: 20110705
  Receipt Date: 20110617
  Transmission Date: 20111222
  Serious: Yes (Hospitalization, Disabling)
  Sender: FDA-Public Use
  Company Number: 2011MA007714

PATIENT
  Age: 32 Year
  Sex: Female

DRUGS (1)
  1. IBUPROFEN [Suspect]
     Indication: BACK PAIN
     Dosage: 800 MG;Q8H

REACTIONS (9)
  - MONOPLEGIA [None]
  - INTRACRANIAL PRESSURE INCREASED [None]
  - SPINAL CORD DISORDER [None]
  - BLOOD PRESSURE INCREASED [None]
  - HAEMATOCRIT DECREASED [None]
  - EXTRADURAL HAEMATOMA [None]
  - BACK PAIN [None]
  - SENSORY LOSS [None]
  - VAGINAL HAEMORRHAGE [None]
